FAERS Safety Report 5327871-9 (Version None)
Quarter: 2007Q2

REPORT INFORMATION
  Report Type: 
  Country: None (occurrence: None)
  Receive Date: 20070517
  Receipt Date: 20070509
  Transmission Date: 20071010
  Serious: Yes (Disabling)
  Sender: FDA-Public Use
  Company Number: US-PFIZER INC-2007029751

PATIENT
  Sex: Female
  Weight: 76.7 kg

DRUGS (8)
  1. AROMASIN [Suspect]
     Indication: BREAST CANCER
     Route: 048
  2. AVAPRO [Concomitant]
     Route: 048
  3. ASPIRIN [Concomitant]
     Route: 048
     Dates: start: 20030101
  4. CRESTOR [Concomitant]
     Route: 048
     Dates: start: 20040101
  5. CALCIUM CHLORIDE [Concomitant]
     Route: 048
     Dates: start: 20050101
  6. VITACAL [Concomitant]
     Route: 048
     Dates: start: 20050101
  7. CARDIZEM [Concomitant]
     Route: 048
     Dates: start: 20030101
  8. TOPROL-XL [Concomitant]
     Route: 048
     Dates: start: 20061001

REACTIONS (1)
  - RETINAL VEIN OCCLUSION [None]
